FAERS Safety Report 11511021 (Version 2)
Quarter: 2015Q3

REPORT INFORMATION
  Report Type: Spontaneous
  Country: US (occurrence: US)
  Receive Date: 20150915
  Receipt Date: 20150921
  Transmission Date: 20151125
  Serious: No
  Sender: FDA-Public Use
  Company Number: US-TAKEDA-2015MPI005974

PATIENT
  Sex: Male
  Weight: 100.1 kg

DRUGS (1)
  1. VELCADE [Suspect]
     Active Substance: BORTEZOMIB
     Indication: PLASMA CELL MYELOMA
     Dosage: 2.9 MG, UNK
     Route: 058

REACTIONS (4)
  - Dizziness [Unknown]
  - Fatigue [Unknown]
  - Dyspnoea exertional [Unknown]
  - Neuropathy peripheral [Unknown]
